FAERS Safety Report 7645938-7 (Version None)
Quarter: 2011Q3

REPORT INFORMATION
  Report Type: 
  Country: None (occurrence: None)
  Receive Date: 20110729
  Receipt Date: 20110726
  Transmission Date: 20111222
  Serious: Yes (Life-Threatening, Hospitalization, Other)
  Sender: FDA-Public Use
  Company Number: GB-MERCK-0901GBR00077

PATIENT
  Age: 43 Year
  Sex: Male
  Weight: 59 kg

DRUGS (11)
  1. RAMIPRIL [Concomitant]
     Indication: MYOCARDIAL ISCHAEMIA
     Route: 065
     Dates: start: 20070301
  2. GLICLAZIDE [Concomitant]
     Indication: DIABETES MELLITUS
     Route: 065
     Dates: start: 20070301
  3. RAMIPRIL [Concomitant]
     Route: 065
  4. SULFAMETHOXAZOLE AND TRIMETHOPRIM [Suspect]
     Indication: ANTIFUNGAL PROPHYLAXIS
     Route: 065
     Dates: start: 20071031
  5. ZOCOR [Suspect]
     Indication: MYOCARDIAL ISCHAEMIA
     Route: 048
     Dates: start: 20070301, end: 20071113
  6. FLUCONAZOLE [Suspect]
     Indication: ORAL CANDIDIASIS
     Route: 048
     Dates: start: 20071105, end: 20071113
  7. METFORMIN [Concomitant]
     Indication: DIABETES MELLITUS
     Route: 065
     Dates: start: 20070301
  8. CLOPIDOGREL BISULFATE [Concomitant]
     Route: 065
     Dates: start: 20070301
  9. GLICLAZIDE [Concomitant]
     Route: 065
  10. METFORMIN [Concomitant]
     Route: 065
  11. ATENOLOL [Concomitant]
     Indication: MYOCARDIAL ISCHAEMIA
     Route: 065
     Dates: start: 20070301

REACTIONS (7)
  - RHABDOMYOLYSIS [None]
  - PYREXIA [None]
  - TUBERCULOSIS [None]
  - BLOOD CREATINE PHOSPHOKINASE INCREASED [None]
  - RENAL FAILURE ACUTE [None]
  - GAIT DISTURBANCE [None]
  - DRUG INTERACTION [None]
